FAERS Safety Report 5069276-4 (Version None)
Quarter: 2006Q3

REPORT INFORMATION
  Report Type: 
  Country: None (occurrence: None)
  Receive Date: 20060714
  Receipt Date: 20060330
  Transmission Date: 20061208
  Serious: No
  Sender: FDA-Public Use
  Company Number: 2006SP001467

PATIENT
  Age: 47 Year
  Sex: Female
  Weight: 115.2136 kg

DRUGS (11)
  1. LUNESTA [Suspect]
     Indication: INSOMNIA
     Dosage: 2 MG;1X;ORAL
     Route: 048
     Dates: start: 20060329
  2. COUMADIN [Concomitant]
  3. HYZAAR [Concomitant]
  4. PROMETHAZINE [Concomitant]
  5. NEXIUM [Concomitant]
  6. POTASSIUM [Concomitant]
  7. EFFEXOR [Concomitant]
  8. LASIX [Concomitant]
  9. MUSCLE RELAXANTS [Concomitant]
  10. LORTAB [Concomitant]
  11. AMBIEN [Concomitant]

REACTIONS (1)
  - INSOMNIA [None]
